FAERS Safety Report 14933444 (Version 3)
Quarter: 2018Q2

REPORT INFORMATION
  Report Type: Spontaneous
  Country: GB (occurrence: GB)
  Receive Date: 20180524
  Receipt Date: 20180612
  Transmission Date: 20180711
  Serious: Yes (Other)
  Sender: FDA-Public Use
  Company Number: GB-AMGEN-GBRSP2018068578

PATIENT
  Sex: Female

DRUGS (1)
  1. REPATHA [Suspect]
     Active Substance: EVOLOCUMAB
     Indication: HYPERCHOLESTEROLAEMIA
     Dosage: UNK UNK, Q2WK
     Route: 065
     Dates: start: 201612

REACTIONS (4)
  - Vestibulitis [Unknown]
  - Lower respiratory tract infection [Not Recovered/Not Resolved]
  - Dizziness [Unknown]
  - Nasopharyngitis [Unknown]
